FAERS Safety Report 16805615 (Version 2)
Quarter: 2019Q4

REPORT INFORMATION
  Report Type: Report from Study
  Country: US (occurrence: US)
  Receive Date: 20190913
  Receipt Date: 20191031
  Transmission Date: 20200122
  Serious: Yes (Death, Hospitalization, Other)
  Sender: FDA-Public Use
  Company Number: US-BAYER-2019-168271

PATIENT
  Age: 74 Year
  Sex: Female

DRUGS (2)
  1. ADEMPAS [Suspect]
     Active Substance: RIOCIGUAT
     Dosage: UNK
     Dates: start: 20160614
  2. ADEMPAS [Suspect]
     Active Substance: RIOCIGUAT
     Dosage: 2.5 MG, TID
     Route: 048
     Dates: end: 20190306

REACTIONS (14)
  - Acute kidney injury [None]
  - Chronic obstructive pulmonary disease [None]
  - Sepsis [None]
  - Hypoxia [Fatal]
  - Pneumonia influenzal [Fatal]
  - Encephalopathy [None]
  - Troponin increased [None]
  - Acute respiratory failure [Fatal]
  - Influenza [None]
  - Hypercapnia [Fatal]
  - Dyspnoea [None]
  - Wheezing [None]
  - Cough [None]
  - Back pain [None]

NARRATIVE: CASE EVENT DATE: 20190306
